FAERS Safety Report 9487374 (Version 1)
Quarter: 2013Q3

REPORT INFORMATION
  Report Type: Spontaneous
  Country: FR (occurrence: FR)
  Receive Date: 20130829
  Receipt Date: 20130829
  Transmission Date: 20140515
  Serious: Yes (Hospitalization)
  Sender: FDA-Public Use
  Company Number: FR-ASTRAZENECA-2013SE65362

PATIENT
  Age: 67 Year
  Sex: Male

DRUGS (3)
  1. TENORMINE [Suspect]
     Indication: HYPERTENSION
     Route: 048
     Dates: end: 2013
  2. TENORMINE [Suspect]
     Indication: HYPERTENSION
     Route: 048
     Dates: start: 201308
  3. ODRIK [Concomitant]

REACTIONS (2)
  - Nasal sinus cancer [Not Recovered/Not Resolved]
  - Vomiting [Not Recovered/Not Resolved]
